FAERS Safety Report 24285980 (Version 1)
Quarter: 2024Q3

REPORT INFORMATION
  Report Type: Spontaneous
  Country: US (occurrence: US)
  Receive Date: 20240905
  Receipt Date: 20240905
  Transmission Date: 20241016
  Serious: Yes (Other)
  Sender: SANDOZ
  Company Number: US-SANDOZ-SDZ2024US077463

PATIENT

DRUGS (2)
  1. ALBUTEROL SULFATE [Suspect]
     Active Substance: ALBUTEROL SULFATE
     Indication: Product used for unknown indication
     Dosage: UNK,HFA
     Route: 055
  2. BUDESONIDE [Suspect]
     Active Substance: BUDESONIDE
     Indication: Product used for unknown indication
     Dosage: UNK
     Route: 055

REACTIONS (6)
  - Hepatic cirrhosis [Unknown]
  - Aortic aneurysm [Unknown]
  - Renal cyst [Unknown]
  - Pulmonary mass [Unknown]
  - Intervertebral disc protrusion [Unknown]
  - Therapeutic product effect decreased [Unknown]
